FAERS Safety Report 5384234-8 (Version None)
Quarter: 2007Q3

REPORT INFORMATION
  Report Type: 
  Country: None (occurrence: None)
  Receive Date: 20070709
  Receipt Date: 20060612
  Transmission Date: 20080115
  Serious: Yes (Life-Threatening, Hospitalization)
  Sender: FDA-Public Use
  Company Number: US-2006-014934

PATIENT
  Age: 71 Year
  Sex: Female
  Weight: 108.8 kg

DRUGS (3)
  1. ULTRAVIST 300 [Suspect]
     Indication: COMPUTERISED TOMOGRAM ABDOMEN
     Dosage: 125 ML, 1 DOSE, INTRAVENOUS
     Route: 036
     Dates: start: 20060527, end: 20060527
  2. CARDIZEM [Suspect]
     Dates: start: 20060527, end: 20060527
  3. ADENOSINE [Suspect]
     Dates: start: 20060527, end: 20060527

REACTIONS (1)
  - SWOLLEN TONGUE [None]
